FAERS Safety Report 4695064-4 (Version None)
Quarter: 2005Q2

REPORT INFORMATION
  Report Type: 
  Country: None (occurrence: None)
  Receive Date: 20050617
  Receipt Date: 20050606
  Transmission Date: 20051028
  Serious: Yes (Hospitalization)
  Sender: FDA-Public Use
  Company Number: 2005085550

PATIENT
  Age: 46 Year
  Sex: Male

DRUGS (2)
  1. RELPAX [Suspect]
     Indication: HEADACHE
     Dosage: 60 MG (20 MG, 3 IN 1 D), ORAL
     Route: 048
     Dates: start: 20040702
  2. BUFFERIN [Suspect]
     Indication: HEADACHE
     Dosage: 660 MG, ORAL
     Route: 048
     Dates: start: 20040702

REACTIONS (2)
  - CLONIC CONVULSION [None]
  - LOSS OF CONSCIOUSNESS [None]
